FAERS Safety Report 9236706 (Version 3)
Quarter: 2014Q3

REPORT INFORMATION
  Report Type: Spontaneous
  Country: US (occurrence: US)
  Receive Date: 20130417
  Receipt Date: 20140807
  Transmission Date: 20150326
  Serious: Yes (Hospitalization)
  Sender: FDA-Public Use
  Company Number: US-GLAXOSMITHKLINE-A1020109A

PATIENT
  Age: 69 Year
  Sex: Female

DRUGS (22)
  1. CENTRUM [Concomitant]
     Active Substance: VITAMINS
  2. UNSPECIFIED MEDICATION [Concomitant]
     Active Substance: UNSPECIFIED INGREDIENT
  3. ALLERGY MEDICATION [Concomitant]
     Active Substance: DIPHENHYDRAMINE HYDROCHLORIDE
  4. PROMETHAZINE [Concomitant]
     Active Substance: PROMETHAZINE\PROMETHAZINE HYDROCHLORIDE
  5. ABILIFY [Concomitant]
     Active Substance: ARIPIPRAZOLE
  6. VITAMIN D [Concomitant]
     Active Substance: CHOLECALCIFEROL
  7. NEXIUM [Concomitant]
     Active Substance: ESOMEPRAZOLE MAGNESIUM
  8. CITRACAL [Concomitant]
     Active Substance: CALCIUM CITRATE
  9. LOVAZA [Suspect]
     Active Substance: OMEGA-3-ACID ETHYL ESTERS
     Indication: BLOOD TRIGLYCERIDES INCREASED
     Dosage: 2CAP TWICE PER DAY
     Route: 048
     Dates: start: 2008
  10. CLONAZEPAM. [Concomitant]
     Active Substance: CLONAZEPAM
  11. PROTONIX [Concomitant]
     Active Substance: PANTOPRAZOLE SODIUM
  12. LOMOTIL [Concomitant]
     Active Substance: ATROPINE SULFATE\DIPHENOXYLATE HYDROCHLORIDE
  13. PENTASA [Concomitant]
     Active Substance: MESALAMINE
  14. HUMALOG [Concomitant]
     Active Substance: INSULIN LISPRO
  15. DULOXETINE [Concomitant]
     Active Substance: DULOXETINE
  16. PAXIL [Concomitant]
     Active Substance: PAROXETINE HYDROCHLORIDE
  17. LISINOPRIL. [Concomitant]
     Active Substance: LISINOPRIL
  18. BABY ASPIRIN [Concomitant]
     Active Substance: ASPIRIN
  19. FUROSEMIDE. [Concomitant]
     Active Substance: FUROSEMIDE
  20. LOMOTIL [Concomitant]
     Active Substance: ATROPINE SULFATE\DIPHENOXYLATE HYDROCHLORIDE
  21. TEMAZEPAM. [Concomitant]
     Active Substance: TEMAZEPAM
  22. ANTI-NAUSEA DRUGS [Concomitant]

REACTIONS (12)
  - Vomiting [Unknown]
  - Drug ineffective [Unknown]
  - Diarrhoea [Unknown]
  - Drug administration error [Unknown]
  - Hypertension [Unknown]
  - Surgery [Unknown]
  - General physical health deterioration [Unknown]
  - Crohn^s disease [Unknown]
  - Nausea [Unknown]
  - Blood triglycerides increased [Unknown]
  - Blood cholesterol increased [Unknown]
  - Investigation [Unknown]

NARRATIVE: CASE EVENT DATE: 201309
